FAERS Safety Report 6670397-0 (Version None)
Quarter: 2010Q2

REPORT INFORMATION
  Report Type: 
  Country: None (occurrence: None)
  Receive Date: 20100407
  Receipt Date: 20100329
  Transmission Date: 20101027
  Serious: Yes (Hospitalization)
  Sender: FDA-Public Use
  Company Number: US-BIOGENIDEC-2008BI020850

PATIENT
  Age: 71 Year
  Sex: Female

DRUGS (22)
  1. AVONEX [Suspect]
     Indication: MULTIPLE SCLEROSIS
     Route: 030
     Dates: start: 20020101
  2. AVONEX [Suspect]
     Route: 030
  3. AVONEX [Suspect]
     Route: 030
     Dates: start: 20091101, end: 20091101
  4. BACLOFEN [Concomitant]
     Indication: MUSCLE TIGHTNESS
  5. SYNTHROID [Concomitant]
     Indication: THYROID DISORDER
  6. LEXAPRO [Concomitant]
     Indication: DEPRESSION
  7. XANAX [Concomitant]
     Indication: ANXIETY
  8. HYTRIN [Concomitant]
     Indication: BLOOD PRESSURE
  9. SANCTURA [Concomitant]
     Indication: INCONTINENCE
  10. MIRAPEX [Concomitant]
     Indication: TREMOR
  11. ZYRTEC [Concomitant]
     Indication: SEASONAL ALLERGY
  12. IRON [Concomitant]
     Indication: BLOOD IRON DECREASED
  13. PROCRIT [Concomitant]
     Indication: BLOOD IRON DECREASED
  14. TYLENOL (CAPLET) [Concomitant]
     Indication: ARTHRITIS
  15. SINGULAIR [Concomitant]
     Indication: ASTHMA
  16. CENTRUM SILVER [Concomitant]
     Indication: THERAPEUTIC PROCEDURE
  17. GLUCOSAMINE [Concomitant]
     Indication: THERAPEUTIC PROCEDURE
  18. VITAMIN C [Concomitant]
     Indication: THERAPEUTIC PROCEDURE
  19. VITAMIN D [Concomitant]
     Indication: THERAPEUTIC PROCEDURE
  20. VITAMIN E [Concomitant]
     Indication: THERAPEUTIC PROCEDURE
  21. VITAMIN B COMPLEX CAP [Concomitant]
     Indication: THERAPEUTIC PROCEDURE
  22. CALCIUM [Concomitant]
     Indication: THERAPEUTIC PROCEDURE

REACTIONS (3)
  - CORONARY ARTERY OCCLUSION [None]
  - HAEMATOMA [None]
  - INFLUENZA LIKE ILLNESS [None]
